FAERS Safety Report 10284658 (Version 1)
Quarter: 2014Q3

REPORT INFORMATION
  Report Type: Spontaneous
  Country: US (occurrence: US)
  Receive Date: 20140708
  Receipt Date: 20140708
  Transmission Date: 20150326
  Serious: Yes (Other)
  Sender: FDA-Public Use
  Company Number: US-MYLANLABS-2014S1008484

PATIENT
  Age: 43 Year
  Sex: Female

DRUGS (21)
  1. NEUROTIN /00949202/ [Concomitant]
  2. PEPCID [Concomitant]
     Active Substance: FAMOTIDINE
  3. VESICARE [Concomitant]
     Active Substance: SOLIFENACIN SUCCINATE
  4. TAMSULOSIN [Concomitant]
     Active Substance: TAMSULOSIN
  5. MULTIVITAMINS [Concomitant]
     Active Substance: VITAMINS
  6. FENTANYL TRANSDERMAL SYSTEM [Suspect]
     Active Substance: FENTANYL
     Indication: ULCER
     Dosage: CHANGED Q72H
     Route: 062
     Dates: end: 20140330
  7. FENTANYL TRANSDERMAL SYSTEM [Suspect]
     Active Substance: FENTANYL
     Indication: CYSTITIS INTERSTITIAL
     Dosage: CHANGED Q72H
     Route: 062
     Dates: end: 20140330
  8. PROPRANOLOL [Concomitant]
     Active Substance: PROPRANOLOL\PROPRANOLOL HYDROCHLORIDE
  9. FENTANYL TRANSDERMAL SYSTEM [Suspect]
     Active Substance: FENTANYL
     Indication: ULCER
     Dosage: CHANGED Q72H
     Route: 062
     Dates: start: 20140330
  10. BOTOX [Concomitant]
     Active Substance: ONABOTULINUMTOXINA
  11. FLEXERIL [Concomitant]
     Active Substance: CYCLOBENZAPRINE HYDROCHLORIDE
  12. FENTANYL TRANSDERMAL SYSTEM [Suspect]
     Active Substance: FENTANYL
     Indication: PAIN
     Dosage: CHANGED Q72H
     Route: 062
     Dates: end: 20140330
  13. FENTANYL TRANSDERMAL SYSTEM [Suspect]
     Active Substance: FENTANYL
     Indication: PAIN
     Dosage: CHANGED Q72H
     Route: 062
     Dates: start: 20140330
  14. TOPAMAX [Concomitant]
     Active Substance: TOPIRAMATE
  15. METHERGINE [Concomitant]
     Active Substance: METHYLERGONOVINE MALEATE
  16. VITAMIN B12 [Concomitant]
     Active Substance: CYANOCOBALAMIN
  17. PRAZOSIN [Concomitant]
     Active Substance: PRAZOSIN
  18. CHLORPHENAMINE HYDROCHLORIDE [Concomitant]
  19. FENTANYL TRANSDERMAL SYSTEM [Suspect]
     Active Substance: FENTANYL
     Indication: CYSTITIS INTERSTITIAL
     Dosage: CHANGED Q72H
     Route: 062
     Dates: start: 20140330
  20. CYMBALTA [Concomitant]
     Active Substance: DULOXETINE HYDROCHLORIDE
     Dates: start: 201403
  21. SLOW RELEASE IRON [Concomitant]

REACTIONS (12)
  - Drug withdrawal syndrome [Not Recovered/Not Resolved]
  - Application site reaction [Not Recovered/Not Resolved]
  - Application site infection [Not Recovered/Not Resolved]
  - Application site irritation [Not Recovered/Not Resolved]
  - Hyperhidrosis [Not Recovered/Not Resolved]
  - Somnolence [Not Recovered/Not Resolved]
  - Fatigue [Not Recovered/Not Resolved]
  - Application site erythema [Not Recovered/Not Resolved]
  - Application site erosion [Not Recovered/Not Resolved]
  - Application site pain [Not Recovered/Not Resolved]
  - Application site scar [Not Recovered/Not Resolved]
  - Confusional state [Not Recovered/Not Resolved]

NARRATIVE: CASE EVENT DATE: 201401
